FAERS Safety Report 10062118 (Version 1)
Quarter: 2014Q2

REPORT INFORMATION
  Report Type: Report from Study
  Country: US (occurrence: US)
  Receive Date: 20140407
  Receipt Date: 20140407
  Transmission Date: 20141212
  Serious: No
  Sender: FDA-Public Use
  Company Number: US-ALEXION-A201400943

PATIENT
  Sex: 0

DRUGS (6)
  1. SOLIRIS [Suspect]
     Indication: HAEMOLYTIC URAEMIC SYNDROME
     Dosage: 1200 MG, Q2W
     Route: 042
     Dates: start: 20140110
  2. SOLIRIS [Suspect]
     Dosage: 1200 MG, ONCE IN 28 DAYS
     Route: 042
     Dates: start: 20140327
  3. FOLIC ACID [Concomitant]
     Indication: PRODUCT USED FOR UNKNOWN INDICATION
     Dosage: 3 MG, QD
     Route: 065
     Dates: start: 20131222
  4. AMLODIPINE [Concomitant]
     Indication: HYPERTENSION
     Dosage: 5 MG, QD
     Route: 065
     Dates: start: 20131222
  5. LABETALOL [Concomitant]
     Indication: HYPERTENSION
     Dosage: 200 MG, BID
     Route: 065
     Dates: start: 20131222
  6. LASIX                              /00032601/ [Concomitant]
     Indication: PRODUCT USED FOR UNKNOWN INDICATION
     Dosage: 40 MG, BID
     Route: 065
     Dates: start: 20131222

REACTIONS (2)
  - Therapy cessation [Not Recovered/Not Resolved]
  - Inappropriate schedule of drug administration [Unknown]
